FAERS Safety Report 8520829 (Version 12)
Quarter: 2013Q3

REPORT INFORMATION
  Report Type: Spontaneous
  Country: US (occurrence: US)
  Receive Date: 20120419
  Receipt Date: 20130725
  Transmission Date: 20140515
  Serious: Yes (Hospitalization, Disabling, Other)
  Sender: FDA-Public Use
  Company Number: US-ASTRAZENECA-2011SE41556

PATIENT
  Age: 53 Year
  Sex: Male
  Weight: 104.3 kg

DRUGS (26)
  1. NEXIUM [Suspect]
     Indication: GASTROOESOPHAGEAL REFLUX DISEASE
     Dosage: EVERY DAY
     Route: 048
     Dates: start: 2001
  2. NEXIUM [Suspect]
     Indication: GASTROOESOPHAGEAL REFLUX DISEASE
     Route: 048
     Dates: start: 2001
  3. NEXIUM [Suspect]
     Indication: GASTROOESOPHAGEAL REFLUX DISEASE
     Dosage: 1 PER DAY
     Route: 048
     Dates: start: 2003
  4. NEXIUM [Suspect]
     Indication: GASTROOESOPHAGEAL REFLUX DISEASE
     Route: 048
     Dates: start: 20060412
  5. NEXIUM [Suspect]
     Indication: GASTROOESOPHAGEAL REFLUX DISEASE
     Route: 048
     Dates: start: 201008
  6. PRILOSEC [Suspect]
     Indication: GASTROOESOPHAGEAL REFLUX DISEASE
     Route: 048
  7. PRILOSEC [Suspect]
     Indication: GASTROOESOPHAGEAL REFLUX DISEASE
     Dosage: 1 PER DAY
     Route: 048
     Dates: start: 2004
  8. PREVACID [Suspect]
     Indication: GASTROOESOPHAGEAL REFLUX DISEASE
     Dosage: 1 PER DAY
     Route: 065
     Dates: start: 1995, end: 2003
  9. ROLAIDS [Concomitant]
  10. PEPTO-BISMOL [Concomitant]
     Dosage: ON OCCASION
  11. OSCAL [Concomitant]
     Indication: OSTEOPOROSIS
  12. BONIVA [Concomitant]
     Indication: OSTEOPOROSIS
  13. PROPRANOLOL [Concomitant]
  14. LOSARTAN [Concomitant]
     Indication: BLOOD PRESSURE ABNORMAL
  15. LORTAB [Concomitant]
     Dates: start: 20110706
  16. LEVAQUIN [Concomitant]
     Route: 048
     Dates: start: 20100413
  17. ACTONEL [Concomitant]
     Dates: start: 201008
  18. ALPRAZOLAM/XANAX [Concomitant]
     Dates: start: 20050707
  19. ALPRAZOLAM/XANAX [Concomitant]
     Dates: start: 201008
  20. HYDROCODONE [Concomitant]
     Indication: PAIN
     Dosage: 7.5 MG EVERY SIX HOURS AS NEEDED
     Dates: start: 201008
  21. AMBIEN [Concomitant]
     Dates: start: 201008
  22. WARFARIN SODIUM [Concomitant]
     Dates: start: 200409
  23. DOCUSATE SODIUM [Concomitant]
     Dates: start: 200409
  24. PROTONIX [Concomitant]
     Dates: start: 200409
  25. ULTRACET [Concomitant]
     Dosage: 1 TO 2
     Dates: start: 20050707
  26. PEPCID [Concomitant]
     Indication: GASTROOESOPHAGEAL REFLUX DISEASE

REACTIONS (28)
  - Traumatic fracture [Unknown]
  - Meniscus injury [Unknown]
  - Tibia fracture [Unknown]
  - Suicidal ideation [Unknown]
  - Road traffic accident [Unknown]
  - Pulmonary embolism [Unknown]
  - Gallbladder disorder [Unknown]
  - Osteoporosis [Unknown]
  - Abasia [Unknown]
  - Hand fracture [Unknown]
  - Bone loss [Unknown]
  - Lower limb fracture [Unknown]
  - Bone pain [Unknown]
  - Anxiety [Unknown]
  - Hypovitaminosis [Unknown]
  - Osteoarthritis [Unknown]
  - Osteopenia [Unknown]
  - Lateral patellar compression syndrome [Unknown]
  - Complex regional pain syndrome [Recovering/Resolving]
  - Joint dislocation [Unknown]
  - Anxiety disorder [Unknown]
  - Thrombosis [Unknown]
  - Fall [Unknown]
  - Depression [Unknown]
  - Insomnia [Unknown]
  - Arthritis [Unknown]
  - Muscle atrophy [Unknown]
  - Bone density decreased [Unknown]
